FAERS Safety Report 7080014-6 (Version None)
Quarter: 2010Q4

REPORT INFORMATION
  Report Type: 
  Country: None (occurrence: None)
  Receive Date: 20101102
  Receipt Date: 20091102
  Transmission Date: 20110411
  Serious: No
  Sender: FDA-Public Use
  Company Number: US-ABBOTT-09P-163-0606914-00

PATIENT
  Sex: Female
  Weight: 68.1 kg

DRUGS (4)
  1. BIAXIN [Suspect]
     Indication: HELICOBACTER TEST POSITIVE
     Dosage: PART OF PREV PACK
     Route: 048
     Dates: start: 20091023, end: 20091027
  2. PREVACID [Suspect]
     Indication: PRODUCT USED FOR UNKNOWN INDICATION
  3. AMOXICILLIN [Suspect]
     Indication: PRODUCT USED FOR UNKNOWN INDICATION
  4. VALIUM [Concomitant]
     Indication: PRODUCT USED FOR UNKNOWN INDICATION

REACTIONS (5)
  - DIARRHOEA [None]
  - GASTRIC DISORDER [None]
  - MALAISE [None]
  - NAUSEA [None]
  - TINNITUS [None]
